FAERS Safety Report 13312048 (Version 2)
Quarter: 2017Q1

REPORT INFORMATION
  Report Type: Other
  Country: AU (occurrence: AU)
  Receive Date: 20170309
  Receipt Date: 20170313
  Transmission Date: 20170428
  Serious: Yes (Life-Threatening)
  Sender: FDA-Public Use
  Company Number: AU-RARE DISEASE THERAPEUTICS, INC.-1064034

PATIENT
  Sex: Male

DRUGS (5)
  1. RITUXIMAB [Suspect]
     Active Substance: RITUXIMAB
  2. PREDNISOLONE. [Suspect]
     Active Substance: PREDNISOLONE
  3. MESALAMINE. [Suspect]
     Active Substance: MESALAMINE
  4. PURIXAN [Suspect]
     Active Substance: MERCAPTOPURINE
     Indication: CROHN^S DISEASE
     Route: 048
  5. ADALIMUMAB [Suspect]
     Active Substance: ADALIMUMAB

REACTIONS (2)
  - Off label use [None]
  - Epstein-Barr virus infection [Unknown]
